FAERS Safety Report 24847859 (Version 1)
Quarter: 2025Q1

REPORT INFORMATION
  Report Type: Spontaneous
  Country: US (occurrence: US)
  Receive Date: 20250116
  Receipt Date: 20250116
  Transmission Date: 20250409
  Serious: No
  Sender: ABBVIE
  Company Number: US-ABBVIE-6082882

PATIENT
  Age: 68 Year
  Sex: Male

DRUGS (5)
  1. VRAYLAR [Suspect]
     Active Substance: CARIPRAZINE
     Indication: Product used for unknown indication
     Route: 048
     Dates: end: 202410
  2. OFEV [Suspect]
     Active Substance: NINTEDANIB
     Indication: Idiopathic pulmonary fibrosis
     Dosage: DOSE 150 MG
     Route: 048
     Dates: start: 20240604, end: 202410
  3. OFEV [Suspect]
     Active Substance: NINTEDANIB
     Indication: Idiopathic pulmonary fibrosis
     Dosage: DOSE 150 MG
     Route: 048
     Dates: start: 20240604, end: 202410
  4. OFEV [Suspect]
     Active Substance: NINTEDANIB
     Indication: Idiopathic pulmonary fibrosis
     Dosage: DOSE 150 MG
     Route: 048
     Dates: start: 20240604, end: 202410
  5. OFEV [Suspect]
     Active Substance: NINTEDANIB
     Indication: Idiopathic pulmonary fibrosis
     Dosage: DOSE 150 MG
     Route: 048
     Dates: start: 20240604, end: 202410

REACTIONS (9)
  - Colitis [Unknown]
  - Insomnia [Recovered/Resolved]
  - Constipation [Recovering/Resolving]
  - Nausea [Unknown]
  - Dyspnoea [Not Recovered/Not Resolved]
  - Dry mouth [Unknown]
  - Blood pressure increased [Unknown]
  - Large intestine infection [Unknown]
  - Vomiting [Unknown]

NARRATIVE: CASE EVENT DATE: 20240601
